FAERS Safety Report 4429648-5 (Version None)
Quarter: 2004Q3

REPORT INFORMATION
  Report Type: 
  Country: None (occurrence: None)
  Receive Date: 20040819
  Receipt Date: 20040706
  Transmission Date: 20050211
  Serious: Yes (Disabling)
  Sender: FDA-Public Use
  Company Number: US-MERCK-0407USA00522

PATIENT
  Age: 56 Year
  Sex: Female

DRUGS (10)
  1. FOSAMAX [Suspect]
     Indication: OSTEOPOROSIS
     Route: 048
     Dates: start: 20000601, end: 20030101
  2. LIPITOR [Concomitant]
     Route: 065
  3. LOTENSIN [Concomitant]
     Route: 065
  4. PLAVIX [Concomitant]
     Route: 065
  5. CLORAZEPATE DIPOTASSIUM [Concomitant]
     Route: 065
  6. HYDROCHLOROTHIAZIDE AND TRIAMTERENE [Concomitant]
     Route: 065
  7. PREVACID [Concomitant]
     Route: 065
  8. METOCLOPRAMIDE [Concomitant]
     Route: 065
  9. SEROQUEL [Concomitant]
     Route: 065
  10. VERAPAMIL [Concomitant]
     Route: 065

REACTIONS (6)
  - EATING DISORDER [None]
  - GASTRIC DISORDER [None]
  - GASTROOESOPHAGEAL REFLUX DISEASE [None]
  - NAUSEA [None]
  - STOMACH DISCOMFORT [None]
  - VOMITING [None]
